FAERS Safety Report 20019880 (Version 1)
Quarter: 2021Q4

REPORT INFORMATION
  Report Type: Spontaneous
  Country: IT (occurrence: IT)
  Receive Date: 20211101
  Receipt Date: 20211101
  Transmission Date: 20220303
  Serious: Yes (Other)
  Sender: FDA-Public Use
  Company Number: IT-PFIZER INC-202101443555

PATIENT
  Age: 58 Year
  Sex: Male
  Weight: 79 kg

DRUGS (1)
  1. INFLIXIMAB [Suspect]
     Active Substance: INFLIXIMAB
     Indication: Colitis ulcerative
     Dosage: 800 MG
     Route: 042
     Dates: start: 20201218, end: 20210908

REACTIONS (3)
  - Haematochezia [Unknown]
  - Diarrhoea haemorrhagic [Unknown]
  - Tuberculosis [Unknown]

NARRATIVE: CASE EVENT DATE: 20210908
